FAERS Safety Report 11702238 (Version 2)
Quarter: 2016Q2

REPORT INFORMATION
  Report Type: Report from Study
  Country: BR (occurrence: BR)
  Receive Date: 20151105
  Receipt Date: 20160513
  Transmission Date: 20160815
  Serious: Yes (Hospitalization)
  Sender: FDA-Public Use
  Company Number: BR-VALIDUS PHARMACEUTICALS LLC-BR-2013VAL000369

PATIENT

DRUGS (9)
  1. SANDOSTATIN [Suspect]
     Active Substance: OCTREOTIDE ACETATE
     Dosage: 20 MG, EVERY 45 DAYS
  2. SANDOSTATIN [Suspect]
     Active Substance: OCTREOTIDE ACETATE
     Dosage: 30 MG, QMO
     Route: 030
  3. SANDOSTATIN [Suspect]
     Active Substance: OCTREOTIDE ACETATE
     Dosage: 20 MG, QMO
     Route: 030
  4. LEVOTHYROXINE. [Concomitant]
     Active Substance: LEVOTHYROXINE
     Indication: PRODUCT USED FOR UNKNOWN INDICATION
     Dosage: UNK
  5. SANDOSTATIN [Suspect]
     Active Substance: OCTREOTIDE ACETATE
     Dosage: 20 MG, Q2MO, EVERY 2 MONTHS
     Route: 030
  6. PREDNISONE. [Concomitant]
     Active Substance: PREDNISONE
     Indication: PRODUCT USED FOR UNKNOWN INDICATION
     Dosage: UNK
  7. PARLODEL [Suspect]
     Active Substance: BROMOCRIPTINE MESYLATE
     Indication: PRODUCT USED FOR UNKNOWN INDICATION
     Dosage: UNK
  8. SANDOSTATIN [Suspect]
     Active Substance: OCTREOTIDE ACETATE
     Indication: ACROMEGALY
     Dosage: 20 MG, QMO (MONTHLY)
     Route: 030
     Dates: start: 2000
  9. METICORTEN [Concomitant]
     Active Substance: PREDNISONE
     Indication: PRODUCT USED FOR UNKNOWN INDICATION
     Dosage: UNK

REACTIONS (25)
  - Hyperhidrosis [Unknown]
  - Malaise [Unknown]
  - Feeling abnormal [Unknown]
  - Headache [Not Recovered/Not Resolved]
  - Abdominal pain [Unknown]
  - Inappropriate schedule of drug administration [Unknown]
  - Thyroid mass [Not Recovered/Not Resolved]
  - Eating disorder [Unknown]
  - Pain [Unknown]
  - Fatigue [Unknown]
  - Muscle twitching [Unknown]
  - Choking [Unknown]
  - Walking disability [Unknown]
  - Blood growth hormone abnormal [Recovering/Resolving]
  - Fall [Unknown]
  - Femur fracture [Unknown]
  - Thyroid disorder [Unknown]
  - Electrolyte imbalance [Unknown]
  - Muscular weakness [Unknown]
  - Asthenia [Unknown]
  - Abasia [Unknown]
  - Body height decreased [Unknown]
  - Hypothyroidism [Unknown]
  - Weight increased [Unknown]
  - Hormone level abnormal [Recovering/Resolving]

NARRATIVE: CASE EVENT DATE: 2002
